FAERS Safety Report 16693417 (Version 2)
Quarter: 2019Q3

REPORT INFORMATION
  Report Type: Report from Study
  Country: US (occurrence: US)
  Receive Date: 20190812
  Receipt Date: 20190911
  Transmission Date: 20191004
  Serious: Yes (Hospitalization)
  Sender: FDA-Public Use
  Company Number: US-OTSUKA-2018_033877

PATIENT
  Age: 48 Year
  Sex: Female
  Weight: 76.2 kg

DRUGS (5)
  1. PERCOCET [Concomitant]
     Active Substance: ACETAMINOPHEN\OXYCODONE HYDROCHLORIDE
     Indication: PAIN
     Dosage: 1 DF, TID (5-325 MG)
     Route: 048
  2. TOLVAPTAN [Suspect]
     Active Substance: TOLVAPTAN
     Indication: CONGENITAL CYSTIC KIDNEY DISEASE
     Dosage: 60 MG, QD (UPON WAKING)
     Route: 048
     Dates: start: 20180609
  3. ZOLOFT [Concomitant]
     Active Substance: SERTRALINE HYDROCHLORIDE
     Indication: PRODUCT USED FOR UNKNOWN INDICATION
     Dosage: 100 MG, QD
     Route: 048
  4. TOLVAPTAN [Suspect]
     Active Substance: TOLVAPTAN
     Dosage: 30 MG, QD (8 HRS LATER)
     Route: 048
     Dates: start: 20180609
  5. TOLVAPTAN [Suspect]
     Active Substance: TOLVAPTAN
     Dosage: UNK
     Route: 065

REACTIONS (10)
  - Neutrophil count increased [Unknown]
  - Glomerular filtration rate decreased [Unknown]
  - Cellulitis [Recovered/Resolved]
  - Monocyte count increased [Unknown]
  - Incorrect dose administered [Unknown]
  - White blood cell count increased [Unknown]
  - Blood calcium decreased [Unknown]
  - Treatment noncompliance [Unknown]
  - Blood creatinine increased [Unknown]
  - Blood glucose increased [Unknown]

NARRATIVE: CASE EVENT DATE: 20180609
